FAERS Safety Report 17499314 (Version 1)
Quarter: 2020Q1

REPORT INFORMATION
  Report Type: Report from Study
  Country: CA (occurrence: CA)
  Receive Date: 20200304
  Receipt Date: 20200304
  Transmission Date: 20200409
  Serious: Yes (Other)
  Sender: FDA-Public Use
  Company Number: CA-JNJFOC-20200234021

PATIENT
  Sex: Female

DRUGS (1)
  1. REMICADE [Suspect]
     Active Substance: INFLIXIMAB
     Indication: CROHN^S DISEASE
     Dosage: ON 16-JAN-2020, THE PATIENT RECEIVED HER LAST INFLIXIMAB, RECOMBINANT INFUSION.
     Route: 042

REACTIONS (3)
  - Skin cancer [Unknown]
  - Off label use [Unknown]
  - Product use issue [Unknown]
